FAERS Safety Report 14034880 (Version 6)
Quarter: 2018Q1

REPORT INFORMATION
  Report Type: Spontaneous
  Country: JP (occurrence: JP)
  Receive Date: 20171003
  Receipt Date: 20180319
  Transmission Date: 20180508
  Serious: Yes (Hospitalization, Other)
  Sender: FDA-Public Use
  Company Number: JP-GLAXOSMITHKLINE-JP2017JPN150111

PATIENT
  Age: 81 Year
  Sex: Male
  Weight: 58 kg

DRUGS (13)
  1. BESACOLIN [Concomitant]
     Active Substance: BETHANECHOL CHLORIDE
     Dosage: UNK
  2. NEUER [Concomitant]
     Active Substance: CETRAXATE HYDROCHLORIDE
     Dosage: UNK
  3. ZYLORIC [Concomitant]
     Active Substance: ALLOPURINOL
     Dosage: UNK
  4. HYDREA CAPSULE [Concomitant]
     Dosage: UNK
  5. URIEF [Concomitant]
     Active Substance: SILODOSIN
     Dosage: UNK
  6. ACINON [Concomitant]
     Active Substance: NIZATIDINE
     Dosage: UNK
  7. FRANDOL TAPE [Concomitant]
     Active Substance: ISOSORBIDE DINITRATE
     Dosage: UNK
  8. DIGOXIN. [Concomitant]
     Active Substance: DIGOXIN
     Dosage: UNK
  9. WARFARIN (JAPANESE TRADENAME) [Concomitant]
     Dosage: UNK
  10. VALTREX [Suspect]
     Active Substance: VALACYCLOVIR HYDROCHLORIDE
     Indication: HERPES ZOSTER
     Dosage: 1000 MG, TID
     Route: 048
     Dates: start: 20170923, end: 20170925
  11. ARTIST [Concomitant]
     Active Substance: CARVEDILOL
     Dosage: UNK
  12. VASOLAN [Concomitant]
     Active Substance: VERAPAMIL HYDROCHLORIDE
     Dosage: UNK
  13. ARASENA-A [Concomitant]
     Active Substance: VIDARABINE
     Dosage: UNK

REACTIONS (9)
  - Speech disorder [Recovering/Resolving]
  - Fall [Unknown]
  - Acute kidney injury [Recovering/Resolving]
  - Altered state of consciousness [Recovering/Resolving]
  - Dysarthria [Unknown]
  - Oliguria [Unknown]
  - Toxic encephalopathy [Recovering/Resolving]
  - Nephropathy [Recovered/Resolved]
  - Renal tubular necrosis [Recovered/Resolved]

NARRATIVE: CASE EVENT DATE: 201709
